FAERS Safety Report 5226539-7 (Version None)
Quarter: 2007Q1

REPORT INFORMATION
  Report Type: 
  Country: None (occurrence: None)
  Receive Date: 20061201
  Receipt Date: 20060921
  Transmission Date: 20070707
  Serious: No
  Sender: FDA-Public Use
  Company Number: US200609005547

PATIENT
  Age: 52 Year
  Sex: Male

DRUGS (7)
  1. CYMBALTA [Suspect]
     Indication: DEPRESSION
     Dosage: 120 MG, DAILY (1/D)
     Dates: start: 20051201
  2. BISOPROLOL FUMARATE [Concomitant]
  3. DOXAZOSIN (DOXAZOSIN) [Concomitant]
  4. OMEGA-3 (OMEGA-3 TRIGLYCERIDES) [Concomitant]
  5. LACTULOSE [Concomitant]
  6. VITAMINS [Concomitant]
  7. ASPIRIN [Concomitant]

REACTIONS (5)
  - DECREASED INTEREST [None]
  - DEPRESSION [None]
  - HYPERSOMNIA [None]
  - IRRITABILITY [None]
  - RESTLESSNESS [None]
